FAERS Safety Report 12631891 (Version 2)
Quarter: 2016Q3

REPORT INFORMATION
  Report Type: Spontaneous
  Country: US (occurrence: US)
  Receive Date: 20160808
  Receipt Date: 20160808
  Transmission Date: 20161109
  Serious: No
  Sender: FDA-Public Use
  Company Number: US-BEH-2016061375

PATIENT
  Sex: Female
  Weight: 65 kg

DRUGS (23)
  1. HIZENTRA [Suspect]
     Active Substance: HUMAN IMMUNOGLOBULIN G
     Indication: IMMUNODEFICIENCY COMMON VARIABLE
     Route: 058
  2. HIZENTRA [Suspect]
     Active Substance: HUMAN IMMUNOGLOBULIN G
     Indication: IMMUNODEFICIENCY COMMON VARIABLE
     Route: 058
  3. LOVASTATIN. [Concomitant]
     Active Substance: LOVASTATIN
  4. NAPROXEN. [Concomitant]
     Active Substance: NAPROXEN
  5. ZYRTEC [Concomitant]
     Active Substance: CETIRIZINE HYDROCHLORIDE
  6. FLUOXETINE [Concomitant]
     Active Substance: FLUOXETINE HYDROCHLORIDE
  7. HIZENTRA [Suspect]
     Active Substance: HUMAN IMMUNOGLOBULIN G
     Indication: CHRONIC FATIGUE SYNDROME
     Route: 058
  8. AVAPRO [Concomitant]
     Active Substance: IRBESARTAN
  9. FLAXSEED [Concomitant]
     Active Substance: FLAX SEED
  10. LEVOTHROID [Concomitant]
     Active Substance: LEVOTHYROXINE SODIUM
  11. METFORMIN [Concomitant]
     Active Substance: METFORMIN HYDROCHLORIDE
  12. SANCTURA [Concomitant]
     Active Substance: TROSPIUM CHLORIDE
  13. FEMHRT [Concomitant]
     Active Substance: ETHINYL ESTRADIOL\NORETHINDRONE ACETATE
  14. NASAREL [Concomitant]
     Active Substance: FLUNISOLIDE
  15. NITROFURANTOIN. [Concomitant]
     Active Substance: NITROFURANTOIN
  16. FINACEA [Concomitant]
     Active Substance: AZELAIC ACID
  17. SINGULAIR [Concomitant]
     Active Substance: MONTELUKAST SODIUM
  18. IBUPROFEN. [Concomitant]
     Active Substance: IBUPROFEN
  19. MULTIVITAMINS WITH MINERALS [Concomitant]
     Active Substance: MINERALS\VITAMINS
  20. COENZYME Q10 [Concomitant]
     Active Substance: UBIDECARENONE
  21. EPIPEN [Concomitant]
     Active Substance: EPINEPHRINE
  22. CYANOCOBALAMIN. [Concomitant]
     Active Substance: CYANOCOBALAMIN
  23. TYLENOL P.M. EX-STR [Concomitant]

REACTIONS (2)
  - Administration site pruritus [Unknown]
  - Nasopharyngitis [Unknown]
